FAERS Safety Report 17822430 (Version 1)
Quarter: 2020Q2

REPORT INFORMATION
  Report Type: Spontaneous
  Country: US (occurrence: US)
  Receive Date: 20200526
  Receipt Date: 20200526
  Transmission Date: 20200714
  Serious: Yes (Life-Threatening, Hospitalization, Other)
  Sender: FDA-Public Use
  Company Number: US-CIPLA LTD.-2020US03424

PATIENT

DRUGS (1)
  1. HYDRALAZINE [Suspect]
     Active Substance: HYDRALAZINE HYDROCHLORIDE
     Indication: PRODUCT USED FOR UNKNOWN INDICATION
     Dosage: 100 MILLIGRAM, TID
     Route: 065

REACTIONS (11)
  - Toxicity to various agents [Unknown]
  - Mental status changes [Unknown]
  - Anaemia [Unknown]
  - Anti-neutrophil cytoplasmic antibody positive vasculitis [Recovering/Resolving]
  - Acute kidney injury [Unknown]
  - Pancytopenia [Unknown]
  - Diabetic nephropathy [Unknown]
  - Glomerulosclerosis [Unknown]
  - Cerebrovascular accident [Unknown]
  - Respiratory distress [Unknown]
  - Nervous system disorder [Unknown]
